FAERS Safety Report 17363732 (Version 1)
Quarter: 2020Q1

REPORT INFORMATION
  Report Type: Spontaneous
  Country: AT (occurrence: AT)
  Receive Date: 20200203
  Receipt Date: 20200203
  Transmission Date: 20200409
  Serious: Yes (Other)
  Sender: FDA-Public Use
  Company Number: AT-TAKEDA-2019TUS048217

PATIENT
  Age: 37 Year
  Sex: Female
  Weight: 63 kg

DRUGS (1)
  1. ENTYVIO [Suspect]
     Active Substance: VEDOLIZUMAB
     Indication: COLITIS ULCERATIVE
     Dosage: 300 MILLIGRAM
     Route: 042
     Dates: start: 20190612

REACTIONS (4)
  - Uterine rupture [Unknown]
  - Pregnancy [Recovered/Resolved]
  - Hyperemesis gravidarum [Recovered/Resolved]
  - Gastrointestinal injury [Unknown]

NARRATIVE: CASE EVENT DATE: 20200117
